FAERS Safety Report 8798820 (Version 3)
Quarter: 2013Q2

REPORT INFORMATION
  Report Type: Spontaneous
  Country: US (occurrence: US)
  Receive Date: 20120920
  Receipt Date: 20130425
  Transmission Date: 20140414
  Serious: Yes (Other)
  Sender: FDA-Public Use
  Company Number: US-BAYER-2012-097636

PATIENT
  Age: 76 Year
  Sex: Female
  Weight: 55.33 kg

DRUGS (10)
  1. ALEVE CAPLET/TABLET,MIDOL EXTENDED RELIEF CAPLET [Suspect]
     Indication: ARTHRITIS
     Dosage: 1 DF, QD
     Route: 048
     Dates: start: 2011, end: 2012
  2. MIDOL EXTENDED RELIEF CAPLET [Suspect]
     Dosage: 1 DF, BID
  3. ESTRADIOL [Concomitant]
  4. PREMARIN [Concomitant]
  5. AMITRIPTYLINE [Concomitant]
  6. MULTIPLE VITAMINS [Concomitant]
  7. CRANBERRY [Concomitant]
  8. VITAMIN D [Concomitant]
  9. THYROID PREPARATIONS [Concomitant]
  10. AMBIEN [Concomitant]

REACTIONS (5)
  - Diarrhoea [Recovered/Resolved]
  - Diarrhoea [Recovered/Resolved]
  - Melaena [Recovered/Resolved]
  - Malaise [Recovered/Resolved]
  - Incorrect drug administration duration [None]
